FAERS Safety Report 7601297-7 (Version None)
Quarter: 2011Q3

REPORT INFORMATION
  Report Type: 
  Country: None (occurrence: None)
  Receive Date: 20110711
  Receipt Date: 20110630
  Transmission Date: 20111222
  Serious: Yes (Hospitalization)
  Sender: FDA-Public Use
  Company Number: US-JNJFOC-20110701423

PATIENT
  Sex: Female
  Weight: 54.9 kg

DRUGS (3)
  1. REMICADE [Suspect]
     Indication: INFLAMMATORY BOWEL DISEASE
     Route: 042
     Dates: start: 20031120, end: 20040806
  2. CIMZIA [Suspect]
     Indication: INFLAMMATORY BOWEL DISEASE
     Dosage: WASS CONTINUING AT BASELINE 02-DEC-2010
     Dates: start: 20101115
  3. HUMIRA [Suspect]
     Indication: INFLAMMATORY BOWEL DISEASE
     Dosage: ONLY ONE DOSE REPORTED
     Dates: start: 20080919, end: 20080919

REACTIONS (3)
  - FUNGAL INFECTION [None]
  - BACTERIAL INFECTION [None]
  - WOUND INFECTION STAPHYLOCOCCAL [None]
